FAERS Safety Report 18918483 (Version 1)
Quarter: 2021Q1

REPORT INFORMATION
  Report Type: Spontaneous
  Country: US (occurrence: US)
  Receive Date: 20210219
  Receipt Date: 20210219
  Transmission Date: 20210420
  Serious: Yes (Life-Threatening, Hospitalization, Other)
  Sender: FDA-Public Use
  Company Number: US-VALIDUS PHARMACEUTICALS LLC-US-2021VAL000094

PATIENT

DRUGS (3)
  1. CHLORPROMAZINE. [Suspect]
     Active Substance: CHLORPROMAZINE
     Indication: SEDATION
     Dosage: 6 CC DPT SOLUTION IV (1 CC/KG)
     Route: 042
  2. DEMEROL [Suspect]
     Active Substance: MEPERIDINE HYDROCHLORIDE
     Indication: SEDATION
     Dosage: 6 CC DPT SOLUTION IV (1 CC/KG)
     Route: 042
  3. PHENERGAN [Suspect]
     Active Substance: PROMETHAZINE HYDROCHLORIDE
     Indication: SEDATION
     Dosage: 6 CC DPT SOLUTION IV (1 CC/KG)
     Route: 042

REACTIONS (11)
  - Accidental overdose [Recovered/Resolved]
  - Livedo reticularis [Recovered/Resolved]
  - Musculoskeletal stiffness [Recovered/Resolved]
  - Visual tracking test abnormal [Recovered/Resolved]
  - Erythema [Recovered/Resolved]
  - Hypoxia [Recovered/Resolved]
  - Incorrect route of product administration [Recovered/Resolved]
  - Gaze palsy [Recovered/Resolved]
  - Cardiac arrest [Recovered/Resolved]
  - Bradycardia [Recovered/Resolved]
  - Apnoea [Recovered/Resolved]
